FAERS Safety Report 6747924-8 (Version None)
Quarter: 2010Q2

REPORT INFORMATION
  Report Type: 
  Country: None (occurrence: None)
  Receive Date: 20100528
  Receipt Date: 20100520
  Transmission Date: 20101027
  Serious: Yes (Other)
  Sender: FDA-Public Use
  Company Number: US-AMGEN-QUU411656

PATIENT
  Sex: Male
  Weight: 78.5 kg

DRUGS (4)
  1. NPLATE [Suspect]
     Indication: IDIOPATHIC THROMBOCYTOPENIC PURPURA
     Route: 058
     Dates: start: 20090323
  2. FLOMAX [Concomitant]
  3. METOPROLOL [Concomitant]
  4. DIGOXIN [Concomitant]

REACTIONS (1)
  - THERAPEUTIC RESPONSE DECREASED [None]
